FAERS Safety Report 7057957-2 (Version None)
Quarter: 2010Q4

REPORT INFORMATION
  Report Type: 
  Country: None (occurrence: None)
  Receive Date: 20101021
  Receipt Date: 20101021
  Transmission Date: 20110411
  Serious: Yes (Hospitalization, Disabling)
  Sender: FDA-Public Use
  Company Number: None

PATIENT
  Age: 36 Year
  Sex: Female
  Weight: 61.2356 kg

DRUGS (1)
  1. COMBIVIR [Suspect]

REACTIONS (7)
  - ABDOMINAL PAIN UPPER [None]
  - BACTERIAL TEST POSITIVE [None]
  - BODY TEMPERATURE INCREASED [None]
  - DEVICE RELATED INFECTION [None]
  - INCISION SITE PAIN [None]
  - PANCYTOPENIA [None]
  - RENAL FAILURE [None]
